FAERS Safety Report 17590703 (Version 2)
Quarter: 2022Q1

REPORT INFORMATION
  Report Type: Spontaneous
  Country: DE (occurrence: DE)
  Receive Date: 20200327
  Receipt Date: 20220310
  Transmission Date: 20220423
  Serious: Yes (Hospitalization, Other)
  Sender: FDA-Public Use
  Company Number: DE-NOVARTISPH-NVSC2020DE076502

PATIENT
  Age: 47 Year
  Sex: Female
  Weight: 114.7 kg

DRUGS (9)
  1. DOCETAXEL [Suspect]
     Active Substance: DOCETAXEL
     Indication: Breast cancer metastatic
     Dosage: 167.25 MG, TIW
     Route: 042
     Dates: start: 20171221
  2. DOCETAXEL [Suspect]
     Active Substance: DOCETAXEL
     Dosage: 167.25 MG, TIW
     Route: 042
     Dates: start: 20171222
  3. DOCETAXEL [Suspect]
     Active Substance: DOCETAXEL
     Dosage: UNK
     Route: 042
     Dates: start: 20180405
  4. TRASTUZUMAB [Suspect]
     Active Substance: TRASTUZUMAB
     Indication: Breast cancer metastatic
     Dosage: 611.2 MG, TIW, (SOLUTION FOR INFUSION)
     Route: 042
     Dates: start: 20171221
  5. TRASTUZUMAB [Suspect]
     Active Substance: TRASTUZUMAB
     Dosage: UNK, (SOLUTION FOR INFUSION)
     Route: 042
     Dates: start: 20180408
  6. TAMOXIFEN [Suspect]
     Active Substance: TAMOXIFEN
     Indication: Product used for unknown indication
     Dosage: UNK
     Route: 065
     Dates: end: 20171208
  7. PERTUZUMAB [Suspect]
     Active Substance: PERTUZUMAB
     Indication: Breast cancer metastatic
     Dosage: 840 MG, TIW
     Route: 042
     Dates: start: 20171221
  8. PERTUZUMAB [Suspect]
     Active Substance: PERTUZUMAB
     Dosage: 420 MG, TIW
     Route: 042
  9. PERTUZUMAB [Suspect]
     Active Substance: PERTUZUMAB
     Dosage: UNK
     Route: 042
     Dates: start: 20180405

REACTIONS (13)
  - Menstruation irregular [Unknown]
  - Muscle spasms [Recovered/Resolved]
  - Mucosal dryness [Not Recovered/Not Resolved]
  - Heavy menstrual bleeding [Unknown]
  - Endometrial hyperplasia [Unknown]
  - Nasopharyngitis [Recovered/Resolved]
  - Dyspepsia [Not Recovered/Not Resolved]
  - Diarrhoea [Recovered/Resolved]
  - Nausea [Not Recovered/Not Resolved]
  - Arthralgia [Unknown]
  - Alopecia [Not Recovered/Not Resolved]
  - Pain in extremity [Not Recovered/Not Resolved]
  - Abdominal pain upper [Recovered/Resolved]

NARRATIVE: CASE EVENT DATE: 20171223
